FAERS Safety Report 16379794 (Version 1)
Quarter: 2019Q2

REPORT INFORMATION
  Report Type: Spontaneous
  Country: FR (occurrence: FR)
  Receive Date: 20190531
  Receipt Date: 20190531
  Transmission Date: 20190711
  Serious: Yes (Other)
  Sender: FDA-Public Use
  Company Number: FR-AKCEA THERAPEUTICS-2019IS001547

PATIENT

DRUGS (2)
  1. VOLANESORSEN. [Concomitant]
     Active Substance: VOLANESORSEN
     Indication: PRODUCT USED FOR UNKNOWN INDICATION
     Dosage: UNK, QW
     Route: 058
  2. TEGSEDI [Suspect]
     Active Substance: INOTERSEN SODIUM
     Indication: HEREDITARY NEUROPATHIC AMYLOIDOSIS
     Dosage: 284 MG, QW
     Route: 058

REACTIONS (4)
  - Neutropenia [Unknown]
  - Anaemia [Unknown]
  - Pancytopenia [Unknown]
  - Thrombocytopenia [Unknown]
